FAERS Safety Report 9415591 (Version 1)
Quarter: 2013Q3

REPORT INFORMATION
  Report Type: Spontaneous
  Country: US (occurrence: US)
  Receive Date: 20130723
  Receipt Date: 20130723
  Transmission Date: 20140515
  Serious: Yes (Other)
  Sender: FDA-Public Use
  Company Number: US-CTI_01590_2013

PATIENT
  Age: 46 Year
  Sex: Female

DRUGS (1)
  1. CARDENE IV [Suspect]
     Indication: HYPERTENSION
     Dosage: [PERIPHERAL IV IN HER RIGHT WRIST]
     Route: 042
     Dates: start: 20130709

REACTIONS (2)
  - Infusion site extravasation [Not Recovered/Not Resolved]
  - Soft tissue necrosis [Not Recovered/Not Resolved]
